FAERS Safety Report 7859171-7 (Version None)
Quarter: 2011Q4

REPORT INFORMATION
  Report Type: 
  Country: None (occurrence: None)
  Receive Date: 20111025
  Receipt Date: 20111013
  Transmission Date: 20120403
  Serious: Yes (Other)
  Sender: FDA-Public Use
  Company Number: 2011MA014948

PATIENT
  Age: 39 Year
  Sex: Male

DRUGS (6)
  1. GABAPENTIN [Suspect]
  2. DIHYDROCODEINE BITARTRATE INJ [Suspect]
  3. CARBAMAZEPINE [Suspect]
  4. XANAX [Suspect]
  5. METHADONE HCL [Suspect]
  6. HEROIN (DIAMORPHINE) [Suspect]

REACTIONS (1)
  - EPILEPSY [None]
